FAERS Safety Report 25192043 (Version 1)
Quarter: 2025Q2

REPORT INFORMATION
  Report Type: Spontaneous
  Country: PL (occurrence: PL)
  Receive Date: 20250414
  Receipt Date: 20250414
  Transmission Date: 20250717
  Serious: Yes (Other)
  Sender: SANDOZ
  Company Number: PL-CELLTRION HEALTHCARE HUNGARY KFT-2023PL016208

PATIENT
  Age: 49 Year
  Sex: Female

DRUGS (7)
  1. CYCLOPHOSPHAMIDE [Suspect]
     Active Substance: CYCLOPHOSPHAMIDE
     Indication: Hyperparathyroidism
     Route: 042
  2. RITUXIMAB [Suspect]
     Active Substance: RITUXIMAB
     Indication: Immunosuppression
     Route: 042
  3. CINACALCET [Concomitant]
     Active Substance: CINACALCET
     Indication: Product used for unknown indication
     Route: 065
  4. HEPARIN [Concomitant]
     Active Substance: HEPARIN SODIUM
     Indication: Product used for unknown indication
     Route: 065
  5. METHYLPREDNISOLONE [Concomitant]
     Active Substance: METHYLPREDNISOLONE
     Indication: Anticoagulant therapy
     Route: 065
  6. PREDNISONE [Concomitant]
     Active Substance: PREDNISONE
     Indication: Anticoagulant therapy
     Route: 065
  7. SEVELAMER [Concomitant]
     Active Substance: SEVELAMER
     Indication: Diffuse vasculitis
     Route: 065

REACTIONS (4)
  - Disease progression [Recovering/Resolving]
  - Calciphylaxis [Recovering/Resolving]
  - Lung disorder [Not Recovered/Not Resolved]
  - Drug ineffective for unapproved indication [Unknown]
